FAERS Safety Report 10281812 (Version 5)
Quarter: 2014Q3

REPORT INFORMATION
  Report Type: Spontaneous
  Country: JP (occurrence: JP)
  Receive Date: 20140707
  Receipt Date: 20140828
  Transmission Date: 20150326
  Serious: Yes (Hospitalization, Other)
  Sender: FDA-Public Use
  Company Number: JP-PFIZER INC-2014112511

PATIENT
  Age: 42 Year
  Sex: Male
  Weight: 87 kg

DRUGS (5)
  1. ZYLORIC [Concomitant]
     Active Substance: ALLOPURINOL
     Dosage: 200 MG, DAILY
     Route: 048
  2. LENDORMIN [Concomitant]
     Active Substance: BROTIZOLAM
     Dosage: 0.5 MG, DAILY
     Route: 048
  3. DEPAKENE [Concomitant]
     Active Substance: VALPROIC ACID
     Dosage: 800 MG, DAILY
     Route: 048
  4. KEPPRA [Concomitant]
     Active Substance: LEVETIRACETAM
     Dosage: 1000 MG, DAILY
     Route: 048
  5. FOSPHENYTOIN SODIUM. [Suspect]
     Active Substance: FOSPHENYTOIN SODIUM
     Indication: EPILEPSY
     Dosage: 750 MG, SINGLE
     Route: 042
     Dates: start: 20140413, end: 20140413

REACTIONS (7)
  - Scrotal ulcer [Unknown]
  - Skin ulcer [Unknown]
  - Stevens-Johnson syndrome [Unknown]
  - Lip blister [Unknown]
  - Penile swelling [Unknown]
  - Blister [Unknown]
  - Genital erosion [Unknown]

NARRATIVE: CASE EVENT DATE: 20140414
